FAERS Safety Report 18709300 (Version 1)
Quarter: 2021Q1

REPORT INFORMATION
  Report Type: Spontaneous
  Country: US (occurrence: US)
  Receive Date: 20210107
  Receipt Date: 20210107
  Transmission Date: 20210419
  Serious: No
  Sender: FDA-Public Use
  Company Number: US-GLAXOSMITHKLINE-US2020257532

PATIENT
  Age: 68 Year
  Sex: Male

DRUGS (1)
  1. VOLTAREN ARTHRITIS PAIN [Suspect]
     Active Substance: DICLOFENAC SODIUM
     Indication: ARTHRITIS
     Dosage: UNK
     Dates: start: 20201225, end: 20201225

REACTIONS (6)
  - Spinal pain [Recovering/Resolving]
  - Neck pain [Unknown]
  - Pain in jaw [Unknown]
  - Off label use [Unknown]
  - Product administered at inappropriate site [Unknown]
  - Arthralgia [Unknown]

NARRATIVE: CASE EVENT DATE: 20201225
